FAERS Safety Report 17556403 (Version 4)
Quarter: 2020Q4

REPORT INFORMATION
  Report Type: Spontaneous
  Country: US (occurrence: US)
  Receive Date: 20200318
  Receipt Date: 20201103
  Transmission Date: 20210113
  Serious: No
  Sender: FDA-Public Use
  Company Number: US-SA-2020SA060933

PATIENT

DRUGS (2)
  1. CERAVE PSORIASIS [Concomitant]
     Dosage: UNK
  2. DUPIXENT [Suspect]
     Active Substance: DUPILUMAB
     Indication: DERMATITIS ATOPIC
     Dosage: 300 MG, QOW
     Route: 058
     Dates: start: 20200304

REACTIONS (6)
  - Oropharyngeal pain [Not Recovered/Not Resolved]
  - Therapeutic response shortened [Recovered/Resolved]
  - Blepharitis [Recovered/Resolved]
  - Nasopharyngitis [Recovered/Resolved]
  - Eye pain [Not Recovered/Not Resolved]
  - Dermatitis atopic [Recovered/Resolved]

NARRATIVE: CASE EVENT DATE: 2020
